FAERS Safety Report 10049576 (Version 2)
Quarter: 2014Q2

REPORT INFORMATION
  Report Type: Report from Study
  Country: FI (occurrence: FI)
  Receive Date: 20140401
  Receipt Date: 20140401
  Transmission Date: 20141212
  Serious: Yes (Other)
  Sender: FDA-Public Use
  Company Number: PHHY2014FI027859

PATIENT
  Age: 38 Year
  Sex: Female

DRUGS (6)
  1. LEPONEX [Suspect]
     Indication: SCHIZOAFFECTIVE DISORDER
     Dosage: 300 MG, DAILY
     Route: 048
     Dates: start: 20140203, end: 20140303
  2. LEPONEX [Suspect]
     Indication: OFF LABEL USE
  3. ORGAMETRIL [Concomitant]
     Indication: OLIGOMENORRHOEA
     Dosage: 5 MG, UNK
     Route: 048
  4. THYROXIN [Concomitant]
     Indication: HYPOTHYROIDISM
     Dosage: 0.15 MG, DAILY
     Route: 048
  5. VENLAFAXIN [Concomitant]
     Indication: DEPRESSION
     Dosage: 150 MG, DAILY
     Route: 048
  6. OLANZAPIN [Concomitant]
     Indication: SCHIZOAFFECTIVE DISORDER
     Dosage: 15 MG,DAILY
     Route: 048

REACTIONS (5)
  - Eosinophilic colitis [Recovered/Resolved]
  - Eosinophilia [Recovered/Resolved]
  - Diarrhoea [Recovered/Resolved]
  - Off label use [Unknown]
  - Leukocytosis [Recovered/Resolved]
